FAERS Safety Report 7578730-2 (Version None)
Quarter: 2011Q2

REPORT INFORMATION
  Report Type: 
  Country: None (occurrence: None)
  Receive Date: 20110628
  Receipt Date: 20110617
  Transmission Date: 20111010
  Serious: Yes (Other)
  Sender: FDA-Public Use
  Company Number: US-ELI_LILLY_AND_COMPANY-US201106006056

PATIENT
  Sex: Female

DRUGS (2)
  1. HUMALOG [Suspect]
     Indication: TYPE 1 DIABETES MELLITUS
     Dosage: UNK UNK, TID
     Dates: start: 20100901
  2. HUMALOG [Suspect]
     Dosage: UNK, PRN
     Dates: start: 20100901

REACTIONS (4)
  - DIABETIC RETINOPATHY [None]
  - VISION BLURRED [None]
  - EYE DISORDER [None]
  - EYE HAEMORRHAGE [None]
